FAERS Safety Report 18703776 (Version 2)
Quarter: 2025Q1

REPORT INFORMATION
  Report Type: Spontaneous
  Country: US (occurrence: US)
  Receive Date: 20210106
  Receipt Date: 20250220
  Transmission Date: 20250409
  Serious: Yes (Hospitalization, Other)
  Sender: CSL BEHRING
  Company Number: US-BEH-2021126871

PATIENT
  Sex: Female

DRUGS (4)
  1. HIZENTRA [Suspect]
     Active Substance: HUMAN IMMUNOGLOBULIN G
     Indication: Immunodeficiency common variable
     Dosage: 12 GRAM, QW
     Route: 058
     Dates: start: 20190220
  2. HIZENTRA [Suspect]
     Active Substance: HUMAN IMMUNOGLOBULIN G
     Dosage: 16 G, QW (PRODUCT STRENGTH REPORTED AS 0.2GM/ML)
     Route: 058
     Dates: start: 201902
  3. HIZENTRA [Suspect]
     Active Substance: HUMAN IMMUNOGLOBULIN G
     Dosage: 1 G, QW  (PRODUCT STRENGTH REPORTED AS 0.2GM/ML)
     Route: 058
     Dates: start: 201902
  4. TADALAFIL [Concomitant]
     Active Substance: TADALAFIL

REACTIONS (9)
  - Surgery [Unknown]
  - Dyspnoea [Unknown]
  - Decreased appetite [Unknown]
  - Peripheral swelling [Unknown]
  - Joint swelling [Unknown]
  - Illness [Unknown]
  - Infection [Unknown]
  - Hospitalisation [Unknown]
  - Pneumonia [Unknown]
